FAERS Safety Report 18185888 (Version 1)
Quarter: 2020Q3

REPORT INFORMATION
  Report Type: Spontaneous
  Country: US (occurrence: US)
  Receive Date: 20200823
  Receipt Date: 20200823
  Transmission Date: 20201103
  Serious: No
  Sender: FDA-Public Use
  Company Number: None

PATIENT
  Age: 32 Year
  Sex: Female

DRUGS (1)
  1. GERM?X [Suspect]
     Active Substance: ALCOHOL
     Route: 061
     Dates: start: 20200819, end: 20200822

REACTIONS (2)
  - Product odour abnormal [None]
  - Rash [None]

NARRATIVE: CASE EVENT DATE: 20200822
